FAERS Safety Report 4613227-0 (Version None)
Quarter: 2005Q1

REPORT INFORMATION
  Report Type: 
  Country: None (occurrence: None)
  Receive Date: 20050315
  Receipt Date: 20050304
  Transmission Date: 20050727
  Serious: No
  Sender: FDA-Public Use
  Company Number: JP_050205820

PATIENT
  Age: 76 Year
  Sex: Male

DRUGS (2)
  1. GEMZAR [Suspect]
     Indication: NON-SMALL CELL LUNG CANCER
     Dosage: 1000 MG/M2; OTHER
     Route: 050
     Dates: start: 20041221, end: 20041228
  2. CARBOPLATIN [Concomitant]

REACTIONS (1)
  - BLOOD CREATINE INCREASED [None]
